FAERS Safety Report 5581193-X (Version None)
Quarter: 2007Q4

REPORT INFORMATION
  Report Type: 
  Country: None (occurrence: None)
  Receive Date: 20071227
  Receipt Date: 20071213
  Transmission Date: 20080405
  Serious: Yes (Hospitalization)
  Sender: FDA-Public Use
  Company Number: CERZ-1000005

PATIENT
  Age: 36 Year
  Sex: Female

DRUGS (5)
  1. CEREZYME [Suspect]
     Indication: GAUCHER'S DISEASE
     Dosage: SEE IMAGE
     Route: 042
     Dates: end: 20040101
  2. CEREZYME [Suspect]
     Indication: GAUCHER'S DISEASE
     Dosage: SEE IMAGE
     Route: 042
     Dates: start: 20040101, end: 20070101
  3. CEREZYME [Suspect]
     Indication: GAUCHER'S DISEASE
     Dosage: SEE IMAGE
     Route: 042
     Dates: end: 20070101
  4. CEREZYME [Suspect]
     Indication: GAUCHER'S DISEASE
     Dosage: SEE IMAGE
     Route: 042
     Dates: start: 19961211
  5. MIGLUSTAT [Concomitant]

REACTIONS (1)
  - BONE INFARCTION [None]
